FAERS Safety Report 12134300 (Version 2)
Quarter: 2016Q2

REPORT INFORMATION
  Report Type: Spontaneous
  Country: BE (occurrence: BE)
  Receive Date: 20160301
  Receipt Date: 20160511
  Transmission Date: 20160815
  Serious: Yes (Other)
  Sender: FDA-Public Use
  Company Number: BE-GLAXOSMITHKLINE-BE2016GSK028092

PATIENT
  Age: 66 Year
  Sex: Male
  Weight: 109 kg

DRUGS (9)
  1. SINTROM [Concomitant]
     Active Substance: ACENOCOUMAROL
     Indication: FACTOR V LEIDEN CARRIER
  2. SINTROM [Concomitant]
     Active Substance: ACENOCOUMAROL
     Indication: PULMONARY EMBOLISM
     Dosage: 3 MG, QD
     Route: 048
     Dates: start: 20120315
  3. SIMVASTATINE EG [Concomitant]
     Indication: HYPERCHOLESTEROLAEMIA
     Dosage: 20 MG, QD
     Route: 048
     Dates: start: 20110728
  4. SINTROM [Concomitant]
     Active Substance: ACENOCOUMAROL
     Indication: ANTI FACTOR VIII ANTIBODY INCREASED
  5. SINTROM [Concomitant]
     Active Substance: ACENOCOUMAROL
     Indication: VON WILLEBRAND^S DISEASE
  6. SIMVASTATINE EG [Concomitant]
     Indication: PROPHYLAXIS
  7. COMBODART [Suspect]
     Active Substance: DUTASTERIDE\TAMSULOSIN
     Indication: BENIGN PROSTATIC HYPERPLASIA
     Dosage: UNK, 0.4 MG TAMSULOSINE, 0.5 MG DUTASTERIDE
     Route: 048
     Dates: start: 20110728, end: 2016
  8. TAMSULOSINE [Suspect]
     Active Substance: TAMSULOSIN HYDROCHLORIDE
     Indication: PRODUCT USED FOR UNKNOWN INDICATION
     Dosage: UNK
  9. OMEPRAZOLE. [Concomitant]
     Active Substance: OMEPRAZOLE
     Indication: OESOPHAGITIS
     Dosage: 20 MG, QD
     Route: 048
     Dates: start: 20141014

REACTIONS (4)
  - Bubonic plague [Not Recovered/Not Resolved]
  - Breast pain [Not Recovered/Not Resolved]
  - Dizziness [Not Recovered/Not Resolved]
  - Pseudogynaecomastia [Unknown]

NARRATIVE: CASE EVENT DATE: 201512
